FAERS Safety Report 9554128 (Version 1)
Quarter: 2013Q3

REPORT INFORMATION
  Report Type: Spontaneous
  Country: JP (occurrence: JP)
  Receive Date: 20130925
  Receipt Date: 20130925
  Transmission Date: 20140515
  Serious: Yes (Disabling, Other)
  Sender: FDA-Public Use
  Company Number: JP-BRISTOL-MYERS SQUIBB COMPANY-19422088

PATIENT
  Age: 30 Year
  Sex: Female

DRUGS (1)
  1. ABILIFY TABS [Suspect]
     Route: 048
     Dates: start: 200907, end: 200909

REACTIONS (2)
  - Nephritis [Unknown]
  - Renal impairment [Unknown]
